FAERS Safety Report 16299616 (Version 1)
Quarter: 2019Q2

REPORT INFORMATION
  Report Type: Spontaneous
  Country: IT (occurrence: IT)
  Receive Date: 20190510
  Receipt Date: 20190510
  Transmission Date: 20190711
  Serious: Yes (Hospitalization)
  Sender: FDA-Public Use
  Company Number: IT-SA-2019SA122686

PATIENT
  Age: 87 Year
  Sex: Female

DRUGS (1)
  1. PLAVIX [Suspect]
     Active Substance: CLOPIDOGREL BISULFATE
     Indication: ANTIPLATELET THERAPY
     Dosage: 75 MG, QD
     Route: 048
     Dates: start: 20140101, end: 20190420

REACTIONS (3)
  - Melaena [Recovered/Resolved]
  - Haematemesis [Recovered/Resolved]
  - Oesophagitis ulcerative [Recovered/Resolved]

NARRATIVE: CASE EVENT DATE: 20190420
